FAERS Safety Report 4437010-4 (Version None)
Quarter: 2004Q3

REPORT INFORMATION
  Report Type: 
  Country: None (occurrence: None)
  Receive Date: 20040830
  Receipt Date: 20040715
  Transmission Date: 20050211
  Serious: Yes (Disabling, Other)
  Sender: FDA-Public Use
  Company Number: US-MERCK-0407USA01341

PATIENT
  Age: 61 Year
  Sex: Female
  Weight: 57 kg

DRUGS (7)
  1. FOSAMAX [Suspect]
     Indication: OSTEOPOROSIS
     Route: 048
     Dates: start: 20030101, end: 20030101
  2. FOSAMAX [Suspect]
     Route: 048
     Dates: start: 20020927, end: 20030101
  3. TUMS [Concomitant]
     Route: 065
  4. VAGIFEM [Concomitant]
     Route: 065
     Dates: start: 20020819, end: 20020908
  5. VAGIFEM [Concomitant]
     Route: 065
     Dates: start: 20020909
  6. QUININE [Concomitant]
     Indication: MUSCLE CRAMP
     Route: 065
  7. VITAMIN D (UNSPECIFIED) [Concomitant]
     Route: 065

REACTIONS (6)
  - DYSPEPSIA [None]
  - GASTRITIS [None]
  - GASTROOESOPHAGEAL REFLUX DISEASE [None]
  - OESOPHAGEAL STENOSIS [None]
  - OESOPHAGITIS [None]
  - SPEECH DISORDER [None]
